FAERS Safety Report 18706951 (Version 6)
Quarter: 2021Q1

REPORT INFORMATION
  Report Type: Spontaneous
  Country: CA (occurrence: CA)
  Receive Date: 20210106
  Receipt Date: 20210127
  Transmission Date: 20210419
  Serious: Yes (Hospitalization, Other)
  Sender: FDA-Public Use
  Company Number: CA-PFIZER INC-2021005490

PATIENT
  Age: 68 Year
  Sex: Female

DRUGS (2)
  1. XELJANZ [Suspect]
     Active Substance: TOFACITINIB CITRATE
     Dosage: UNK
     Dates: end: 20201223
  2. METHOTREXATE. [Concomitant]
     Active Substance: METHOTREXATE
     Dosage: 20 MG, WEEKLY
     Dates: end: 20201223

REACTIONS (9)
  - Colitis [Unknown]
  - Infection [Unknown]
  - Dehydration [Unknown]
  - Diverticulum [Not Recovered/Not Resolved]
  - Diarrhoea [Unknown]
  - Pyrexia [Unknown]
  - Exposure to SARS-CoV-2 [Unknown]
  - Heart rate increased [Unknown]
  - Diverticulitis [Unknown]

NARRATIVE: CASE EVENT DATE: 202012
